FAERS Safety Report 8078549-2 (Version None)
Quarter: 2012Q1

REPORT INFORMATION
  Report Type: 
  Country: None (occurrence: None)
  Receive Date: 20120123
  Receipt Date: 20120109
  Transmission Date: 20120608
  Serious: Yes (Hospitalization)
  Sender: FDA-Public Use
  Company Number: 1156733

PATIENT
  Age: 66 Year
  Sex: Female

DRUGS (13)
  1. ASPIRIN [Concomitant]
  2. ATACAND [Concomitant]
  3. ZYPREXA [Concomitant]
  4. HEPARIN SODIUM INJECTION [Suspect]
     Indication: PRODUCT USED FOR UNKNOWN INDICATION
     Dosage: 5000.0 UNITS, 1 EVERY 12 HOURS
  5. CELEXA [Concomitant]
  6. ATIVAN [Concomitant]
  7. LIPITOR [Concomitant]
  8. METOPROLOL [Concomitant]
  9. PLAVIX [Concomitant]
  10. MAXERAN [Concomitant]
  11. NEXIUM [Concomitant]
  12. GRAVOL TAB [Concomitant]
  13. HALDOL [Concomitant]

REACTIONS (3)
  - ASPARTATE AMINOTRANSFERASE INCREASED [None]
  - ALANINE AMINOTRANSFERASE INCREASED [None]
  - GAMMA-GLUTAMYLTRANSFERASE INCREASED [None]
